FAERS Safety Report 17659687 (Version 1)
Quarter: 2020Q2

REPORT INFORMATION
  Report Type: Spontaneous
  Country: US (occurrence: US)
  Receive Date: 20200413
  Receipt Date: 20200413
  Transmission Date: 20200713
  Serious: Yes (Death, Hospitalization, Other)
  Sender: FDA-Public Use
  Company Number: US-MICRO LABS LIMITED-ML2020-01160

PATIENT
  Age: 65 Year
  Sex: Female

DRUGS (7)
  1. MIRTAZAPINE. [Suspect]
     Active Substance: MIRTAZAPINE
     Dosage: 07 PILLS
  2. GABAPENTIN. [Concomitant]
     Active Substance: GABAPENTIN
  3. RIVAROXABAN [Concomitant]
     Active Substance: RIVAROXABAN
  4. VALPROATE [Suspect]
     Active Substance: VALPROIC ACID
     Dosage: 07 PILLS
  5. RANOLAZINE. [Suspect]
     Active Substance: RANOLAZINE
     Dosage: 50 PILLS
  6. QUETIAPINE. [Suspect]
     Active Substance: QUETIAPINE
     Dosage: 07 PILLS
  7. TRAZODONE [Concomitant]
     Active Substance: TRAZODONE HYDROCHLORIDE

REACTIONS (11)
  - Intentional overdose [Fatal]
  - Somnolence [Fatal]
  - Cardiac arrest [Fatal]
  - Hypoxia [Fatal]
  - Generalised tonic-clonic seizure [Fatal]
  - Circulatory collapse [Fatal]
  - Bradycardia [Fatal]
  - Hypotension [Fatal]
  - Pulmonary oedema [Fatal]
  - Hyperhidrosis [Fatal]
  - Electrocardiogram QT prolonged [Fatal]
